FAERS Safety Report 6568937-5 (Version None)
Quarter: 2010Q1

REPORT INFORMATION
  Report Type: 
  Country: None (occurrence: None)
  Receive Date: 20100201
  Receipt Date: 20100201
  Transmission Date: 20100710
  Serious: Yes (Hospitalization, Disabling)
  Sender: FDA-Public Use
  Company Number: None

PATIENT
  Sex: Female
  Weight: 67.586 kg

DRUGS (2)
  1. ZYPREXA [Suspect]
     Indication: MOOD SWINGS
     Dosage: 1 PILL 1 X A DAY
  2. ZYPREXA [Suspect]
     Indication: PREMENSTRUAL SYNDROME
     Dosage: 1 PILL 1 X A DAY

REACTIONS (2)
  - CEREBROVASCULAR ACCIDENT [None]
  - PALPITATIONS [None]
